FAERS Safety Report 9310544 (Version 1)
Quarter: 2013Q2

REPORT INFORMATION
  Report Type: Spontaneous
  Country: US (occurrence: US)
  Receive Date: 20130527
  Receipt Date: 20130527
  Transmission Date: 20140414
  Serious: No
  Sender: FDA-Public Use
  Company Number: US-PFIZER INC-2013161118

PATIENT
  Sex: Male

DRUGS (2)
  1. ZOLOFT [Suspect]
     Dosage: 25 MG, UNK
     Dates: start: 201305, end: 201305
  2. ZOLOFT [Suspect]
     Dosage: 50 MG, UNK
     Dates: start: 201305

REACTIONS (1)
  - Nervousness [Unknown]
